FAERS Safety Report 7871299-4 (Version None)
Quarter: 2011Q4

REPORT INFORMATION
  Report Type: 
  Country: None (occurrence: None)
  Receive Date: 20111003
  Receipt Date: 20100817
  Transmission Date: 20120403
  Serious: Yes (Disabling, Other)
  Sender: FDA-Public Use
  Company Number: 245206USA

PATIENT
  Sex: Female

DRUGS (4)
  1. MEDROXYPROGESTERONE ACETATE [Suspect]
  2. CONJUGATED ESTROGENS [Suspect]
  3. PROVELLA-14 [Suspect]
  4. MEDROXYPROGESTERONE ACETATE [Suspect]

REACTIONS (4)
  - BREAST CANCER [None]
  - THROMBOSIS [None]
  - MYOCARDIAL INFARCTION [None]
  - CEREBROVASCULAR ACCIDENT [None]
